FAERS Safety Report 8408150-X (Version None)
Quarter: 2012Q2

REPORT INFORMATION
  Report Type: 
  Country: None (occurrence: None)
  Receive Date: 20120604
  Receipt Date: 20120530
  Transmission Date: 20120825
  Serious: Yes (Other)
  Sender: FDA-Public Use
  Company Number: JP-PFIZER INC-2012119479

PATIENT
  Age: 84 Year
  Sex: Female

DRUGS (2)
  1. LYRICA [Suspect]
     Indication: NEURALGIA
     Dosage: 150 MG/DAY
     Route: 048
  2. ASPIRIN [Concomitant]
     Dosage: UNK
     Route: 048
     Dates: end: 20120516

REACTIONS (1)
  - MELAENA [None]
